FAERS Safety Report 6107261-1 (Version None)
Quarter: 2009Q1

REPORT INFORMATION
  Report Type: 
  Country: None (occurrence: None)
  Receive Date: 20090309
  Receipt Date: 20090227
  Transmission Date: 20090719
  Serious: Yes (Life-Threatening, Other)
  Sender: FDA-Public Use
  Company Number: GB-BAYER-200910634BNE

PATIENT

DRUGS (1)
  1. MABCAMPATH [Suspect]
     Indication: TRANSPLANT

REACTIONS (1)
  - TRANSPLANT REJECTION [None]
